FAERS Safety Report 7068798-4 (Version None)
Quarter: 2010Q4

REPORT INFORMATION
  Report Type: 
  Country: None (occurrence: None)
  Receive Date: 20101027
  Receipt Date: 20101027
  Transmission Date: 20110411
  Serious: Yes (Other)
  Sender: FDA-Public Use
  Company Number: None

PATIENT
  Sex: Male

DRUGS (1)
  1. OXYCONTIN [Suspect]
     Indication: NEURALGIA
     Dosage: 2 TABS AT 8AM + AT 8PM PO
     Route: 048
     Dates: start: 20101012, end: 20101025

REACTIONS (6)
  - DYSGEUSIA [None]
  - DYSPEPSIA [None]
  - MEDICATION RESIDUE [None]
  - NAUSEA [None]
  - PRODUCT ODOUR ABNORMAL [None]
  - TONGUE DISCOLOURATION [None]
